FAERS Safety Report 6236367-1 (Version None)
Quarter: 2009Q2

REPORT INFORMATION
  Report Type: 
  Country: None (occurrence: None)
  Receive Date: 20090619
  Receipt Date: 20090609
  Transmission Date: 20091009
  Serious: Yes (Hospitalization)
  Sender: FDA-Public Use
  Company Number: US-JNJFOC-20090603092

PATIENT
  Age: 67 Year
  Sex: Male
  Weight: 93 kg

DRUGS (24)
  1. DOXORUBICIN HCL [Suspect]
     Dosage: CYCLE 2. 85MG ADMINISTERED
     Route: 042
  2. DOXORUBICIN HCL [Suspect]
     Indication: DIFFUSE LARGE B-CELL LYMPHOMA
     Dosage: CYCLE 1. 85MG ADMINISTERED
     Route: 042
  3. CYCLOPHOSPHAMIDE [Suspect]
     Dosage: CYCLE 2. 1598MG ADMINISTERED
     Route: 065
  4. CYCLOPHOSPHAMIDE [Suspect]
     Indication: DIFFUSE LARGE B-CELL LYMPHOMA
     Dosage: CYCLE 1. 1598MG ADMINISTERED
     Route: 065
  5. RITUXIMAB [Suspect]
     Dosage: CYCLE 2. 799MG ADMINISTERED
     Route: 042
  6. RITUXIMAB [Suspect]
     Indication: DIFFUSE LARGE B-CELL LYMPHOMA
     Dosage: CYCLE 1. 799MG ADMINISTERED
     Route: 042
  7. PREDNISONE TAB [Suspect]
     Dosage: CYCLE 2. 400MG ADMINISTERED
     Route: 048
  8. PREDNISONE TAB [Suspect]
     Indication: DIFFUSE LARGE B-CELL LYMPHOMA
     Dosage: CYCLE 2. 400MG ADMINISTERED
     Route: 048
  9. NEULASTA [Suspect]
     Indication: DIFFUSE LARGE B-CELL LYMPHOMA
     Dosage: CYCLE 2. 6MG ADMINISTERED
     Route: 058
  10. VINCRISTINE [Suspect]
     Dosage: CYCLE 2. 2MG ADMINISTERED
     Route: 042
  11. VINCRISTINE [Suspect]
     Indication: DIFFUSE LARGE B-CELL LYMPHOMA
     Dosage: CYCLE 1. 2MG ADMINISTERED
     Route: 042
  12. DILAUDID [Concomitant]
  13. GLYBURIDE [Concomitant]
  14. INSULIN [Concomitant]
  15. NYSTATIN [Concomitant]
  16. PROPOXYPHENE HCL CAP [Concomitant]
  17. FAMOTIDINE [Concomitant]
  18. FONDAPARINUX [Concomitant]
  19. METOPROLOL SUCCINATE [Concomitant]
  20. MOXIFLOXACIN HCL [Concomitant]
  21. ONDANSETRON [Concomitant]
  22. SENOKOT [Concomitant]
  23. SIMETHICONE [Concomitant]
  24. VALTREX [Concomitant]

REACTIONS (1)
  - GASTRIC HAEMORRHAGE [None]
